FAERS Safety Report 7680527-X (Version None)
Quarter: 2011Q3

REPORT INFORMATION
  Report Type: 
  Country: None (occurrence: None)
  Receive Date: 20110812
  Receipt Date: 20110801
  Transmission Date: 20111222
  Serious: Yes (Hospitalization)
  Sender: FDA-Public Use
  Company Number: US-JNJFOC-20110307566

PATIENT
  Sex: Male
  Weight: 71.4 kg

DRUGS (5)
  1. HUMIRA [Concomitant]
  2. REMICADE [Suspect]
     Route: 042
     Dates: start: 20040127
  3. REMICADE [Suspect]
     Indication: CROHN'S DISEASE
     Dosage: TOTAL 57 DOSES
     Route: 042
     Dates: start: 20101014
  4. METHOTREXATE [Concomitant]
  5. PREDNISONE [Concomitant]

REACTIONS (1)
  - CROHN'S DISEASE [None]
